FAERS Safety Report 25381163 (Version 3)
Quarter: 2025Q3

REPORT INFORMATION
  Report Type: Spontaneous
  Country: GB (occurrence: GB)
  Receive Date: 20250530
  Receipt Date: 20250805
  Transmission Date: 20251021
  Serious: No
  Sender: UCB
  Company Number: GB-UCBSA-2025032252

PATIENT

DRUGS (1)
  1. NEUPRO [Suspect]
     Active Substance: ROTIGOTINE
     Indication: Product used for unknown indication
     Route: 062

REACTIONS (1)
  - Product adhesion issue [Unknown]
